FAERS Safety Report 10418822 (Version 2)
Quarter: 2014Q3

REPORT INFORMATION
  Report Type: Spontaneous
  Country: US (occurrence: US)
  Receive Date: 20140829
  Receipt Date: 20140919
  Transmission Date: 20150326
  Serious: Yes (Other)
  Sender: FDA-Public Use
  Company Number: US-TARO-2014TAR00265

PATIENT
  Age: 71 Year
  Sex: Female
  Weight: 79.37 kg

DRUGS (5)
  1. ATHLETES FOOT NOS [Suspect]
     Active Substance: MICONAZOLE NITRATE OR TERBINAFINE HYDROCHLORIDE OR TOLNAFTATE
     Indication: ONYCHOMYCOSIS
     Dosage: UNK UNK, 2X/DAY
     Route: 061
     Dates: start: 20140815, end: 20140816
  2. METFORMIN [Concomitant]
     Active Substance: METFORMIN HYDROCHLORIDE
  3. SINGULAIR [Concomitant]
     Active Substance: MONTELUKAST SODIUM
     Indication: HYPERSENSITIVITY
     Dosage: UNK, 2X/DAY
     Route: 061
     Dates: start: 20140815, end: 20140816
  4. LANSOPRAZOLE. [Concomitant]
     Active Substance: LANSOPRAZOLE
  5. TRIAMTERENE AND HYDROCHLOROTHIAZIDE [Concomitant]
     Active Substance: HYDROCHLOROTHIAZIDE\TRIAMTERENE

REACTIONS (3)
  - Hypersensitivity [Recovered/Resolved]
  - Off label use [None]
  - Blister [Recovered/Resolved]

NARRATIVE: CASE EVENT DATE: 20140816
